FAERS Safety Report 11734434 (Version 1)
Quarter: 2015Q4

REPORT INFORMATION
  Report Type: Spontaneous
  Country: US (occurrence: US)
  Receive Date: 20151113
  Receipt Date: 20151113
  Transmission Date: 20160304
  Serious: Yes (Other)
  Sender: FDA-Public Use
  Company Number: US-TEVA-608028ACC

PATIENT
  Sex: Female
  Weight: 66.28 kg

DRUGS (1)
  1. PARAGARD T 380A [Suspect]
     Active Substance: COPPER
     Indication: CONTRACEPTION
     Dates: start: 20150824, end: 20151103

REACTIONS (3)
  - Device dislocation [Recovered/Resolved]
  - Embedded device [Recovered/Resolved]
  - Dysmenorrhoea [Recovered/Resolved]
